FAERS Safety Report 9569012 (Version 1)
Quarter: 2013Q3

REPORT INFORMATION
  Report Type: Spontaneous
  Country: US (occurrence: US)
  Receive Date: 20130930
  Receipt Date: 20130930
  Transmission Date: 20140515
  Serious: No
  Sender: FDA-Public Use
  Company Number: US-AMGEN-USASP2013060465

PATIENT
  Age: 56 Year
  Sex: Female
  Weight: 99.77 kg

DRUGS (12)
  1. ENBREL [Suspect]
     Indication: PRODUCT USED FOR UNKNOWN INDICATION
     Dosage: 50 MG, QWK
     Route: 058
  2. METHOTREXATE [Concomitant]
     Dosage: 2.5 MG, UNK
  3. PREDNISONE [Concomitant]
     Dosage: 1 MG, UNK
  4. NORVASC [Concomitant]
     Dosage: 5 MG, UNK
  5. CITALOPRAM [Concomitant]
     Dosage: 10 MG, UNK
  6. ZANTAC [Concomitant]
     Dosage: 75 UNK, UNK
  7. VITAMIN D                          /00107901/ [Concomitant]
     Dosage: 400 UNIT, UNK
  8. ALEVE [Concomitant]
     Dosage: 220 MG, UNK
  9. CALCIUM [Concomitant]
     Dosage: 500 UNK, UNK
  10. MULTIVITAMINS, PLAIN [Concomitant]
     Dosage: UNK
  11. FOLIC ACID [Concomitant]
     Dosage: UNK
  12. ZIAC                               /01166101/ [Concomitant]
     Dosage: UNK, 2.5/6.25

REACTIONS (1)
  - Therapeutic response decreased [Unknown]
